FAERS Safety Report 20701345 (Version 2)
Quarter: 2022Q2

REPORT INFORMATION
  Report Type: Report from Study
  Country: AU (occurrence: AU)
  Receive Date: 20220412
  Receipt Date: 20220516
  Transmission Date: 20220721
  Serious: No
  Sender: FDA-Public Use
  Company Number: AU-AstraZeneca-2022-40079

PATIENT
  Age: 44 Year
  Sex: Female

DRUGS (45)
  1. TRASTUZUMAB DERUXTECAN [Suspect]
     Active Substance: TRASTUZUMAB DERUXTECAN
     Indication: HER2 positive breast cancer
     Dosage: 5.4 MG/KG, ONCE EVERY 3 WK
     Route: 042
     Dates: start: 20210325, end: 20210325
  2. TRASTUZUMAB DERUXTECAN [Suspect]
     Active Substance: TRASTUZUMAB DERUXTECAN
     Dosage: 5.4 MG/KG, ONCE EVERY 3 WK
     Route: 042
     Dates: start: 20210414, end: 20210414
  3. TRASTUZUMAB DERUXTECAN [Suspect]
     Active Substance: TRASTUZUMAB DERUXTECAN
     Dosage: 5.4 MG/KG, ONCE EVERY 3 WK
     Route: 042
     Dates: start: 20210504, end: 20210504
  4. TRASTUZUMAB DERUXTECAN [Suspect]
     Active Substance: TRASTUZUMAB DERUXTECAN
     Dosage: 5.4 MG/KG, ONCE EVERY 3 WK
     Route: 042
     Dates: start: 20210525, end: 20210525
  5. TRASTUZUMAB DERUXTECAN [Suspect]
     Active Substance: TRASTUZUMAB DERUXTECAN
     Dosage: 5.4 MG/KG, ONCE EVERY 3 WK
     Route: 042
     Dates: start: 20210622, end: 20210622
  6. TRASTUZUMAB DERUXTECAN [Suspect]
     Active Substance: TRASTUZUMAB DERUXTECAN
     Dosage: 5.4 MG/KG, ONCE EVERY 3 WK
     Route: 042
     Dates: start: 20210715, end: 20210715
  7. TRASTUZUMAB DERUXTECAN [Suspect]
     Active Substance: TRASTUZUMAB DERUXTECAN
     Dosage: 5.4 MG/KG, ONCE EVERY 3 WK
     Route: 042
     Dates: start: 20210803, end: 20210803
  8. TRASTUZUMAB DERUXTECAN [Suspect]
     Active Substance: TRASTUZUMAB DERUXTECAN
     Dosage: 5.4 MG/KG, ONCE EVERY 3 WK
     Route: 042
     Dates: start: 20210823, end: 20210823
  9. TRASTUZUMAB DERUXTECAN [Suspect]
     Active Substance: TRASTUZUMAB DERUXTECAN
     Dosage: 5.4 MG/KG, ONCE EVERY 3 WK
     Route: 042
     Dates: start: 20210913, end: 20210913
  10. TRASTUZUMAB DERUXTECAN [Suspect]
     Active Substance: TRASTUZUMAB DERUXTECAN
     Dosage: 5.4 MG/KG, ONCE EVERY 3 WK
     Route: 042
     Dates: start: 20211004, end: 20211004
  11. TRASTUZUMAB DERUXTECAN [Suspect]
     Active Substance: TRASTUZUMAB DERUXTECAN
     Dosage: 5.4 MG/KG, ONCE EVERY 3 WK
     Route: 042
     Dates: start: 20211025, end: 20211025
  12. TRASTUZUMAB DERUXTECAN [Suspect]
     Active Substance: TRASTUZUMAB DERUXTECAN
     Dosage: 5.4 MG/KG, ONCE EVERY 3 WK
     Route: 042
     Dates: start: 20211115, end: 20211115
  13. TRASTUZUMAB DERUXTECAN [Suspect]
     Active Substance: TRASTUZUMAB DERUXTECAN
     Dosage: 5.4 MG/KG, ONCE EVERY 3 WK
     Route: 042
     Dates: start: 20211207, end: 20211207
  14. TRASTUZUMAB DERUXTECAN [Suspect]
     Active Substance: TRASTUZUMAB DERUXTECAN
     Dosage: 5.4 MG/KG, ONCE EVERY 3 WK
     Route: 042
     Dates: start: 2022, end: 2022
  15. TRASTUZUMAB DERUXTECAN [Suspect]
     Active Substance: TRASTUZUMAB DERUXTECAN
     Dosage: 5.4 MG/KG, ONCE EVERY 3 WK
     Route: 042
     Dates: start: 20220117, end: 20220117
  16. TRASTUZUMAB DERUXTECAN [Suspect]
     Active Substance: TRASTUZUMAB DERUXTECAN
     Dosage: 5.4 MG/KG, ONCE EVERY 3 WK
     Route: 042
     Dates: start: 20220207, end: 20220207
  17. PACLITAXEL [Suspect]
     Active Substance: PACLITAXEL
     Indication: HER2 positive breast cancer
     Dosage: 60 MG/M2, ONCE EVERY 1 WK
     Route: 042
     Dates: start: 20210325, end: 20210325
  18. PACLITAXEL [Suspect]
     Active Substance: PACLITAXEL
     Dosage: 60 MG/M2, ONCE EVERY 1 WK
     Route: 042
     Dates: start: 20210401, end: 20210401
  19. PACLITAXEL [Suspect]
     Active Substance: PACLITAXEL
     Dosage: 60 MG/M2, ONCE EVERY 1 WK
     Route: 042
     Dates: start: 20210408, end: 20210408
  20. PACLITAXEL [Suspect]
     Active Substance: PACLITAXEL
     Dosage: 60 MG/M2, ONCE EVERY 1 WK
     Route: 042
     Dates: start: 20210414, end: 20210414
  21. PACLITAXEL [Suspect]
     Active Substance: PACLITAXEL
     Dosage: 60 MG/M2, ONCE EVERY 1 WK
     Route: 042
     Dates: start: 20210421, end: 20210421
  22. PACLITAXEL [Suspect]
     Active Substance: PACLITAXEL
     Dosage: 60 MG/M2, ONCE EVERY 1 WK
     Route: 042
     Dates: start: 20210428, end: 20210428
  23. PACLITAXEL [Suspect]
     Active Substance: PACLITAXEL
     Dosage: 60 MG/M2, ONCE EVERY 1 WK
     Route: 042
     Dates: start: 20210504, end: 20210504
  24. PACLITAXEL [Suspect]
     Active Substance: PACLITAXEL
     Dosage: 60 MG/M2, ONCE EVERY 1 WK
     Route: 042
     Dates: start: 20210511, end: 20210511
  25. PACLITAXEL [Suspect]
     Active Substance: PACLITAXEL
     Dosage: 60 MG/M2, ONCE EVERY 1 WK
     Route: 042
     Dates: start: 20210518, end: 20210518
  26. PACLITAXEL [Suspect]
     Active Substance: PACLITAXEL
     Dosage: 60 MG/M2, ONCE EVERY 1 WK
     Route: 042
     Dates: start: 20210525, end: 20210525
  27. PACLITAXEL [Suspect]
     Active Substance: PACLITAXEL
     Dosage: 60 MG/M2, ONCE EVERY 1 WK
     Route: 042
     Dates: start: 20210601, end: 20210601
  28. PACLITAXEL [Suspect]
     Active Substance: PACLITAXEL
     Dosage: 60 MG/M2, ONCE EVERY 1 WK
     Route: 042
     Dates: start: 20210608, end: 20210608
  29. PACLITAXEL [Suspect]
     Active Substance: PACLITAXEL
     Dosage: 60 MG/M2, ONCE EVERY 1 WK
     Route: 042
     Dates: start: 20210622, end: 20210622
  30. PACLITAXEL [Suspect]
     Active Substance: PACLITAXEL
     Dosage: 60 MG/M2, ONCE EVERY 1 WK
     Route: 042
     Dates: start: 20210629, end: 20210629
  31. PACLITAXEL [Suspect]
     Active Substance: PACLITAXEL
     Dosage: 60 MG/M2, ONCE EVERY 1 WK
     Route: 042
     Dates: start: 20210706, end: 20210706
  32. MOBIC [Concomitant]
     Active Substance: MELOXICAM
     Indication: Back pain
     Dosage: 15
     Dates: start: 20170101
  33. COLOXYL (DOCUSATE SODIUM 50MG) + SENNA (SENNOSIDES 8MG) [Concomitant]
     Indication: Constipation
     Dosage: 2 DF
     Dates: start: 20170101, end: 20211019
  34. MOVICOL [Concomitant]
     Active Substance: POLYETHYLENE GLYCOL 3350\POTASSIUM CHLORIDE\SODIUM BICARBONATE\SODIUM CHLORIDE
     Indication: Constipation
     Dosage: 3.0 SACHET  DAILY
     Dates: start: 20170101
  35. TEMAZEPAM [Concomitant]
     Active Substance: TEMAZEPAM
     Indication: Anxiety
     Dosage: 10
     Dates: start: 20201001
  36. METOCLOPRAMIDE [Concomitant]
     Active Substance: METOCLOPRAMIDE
     Indication: Nausea
     Dosage: 10
     Dates: start: 20210403
  37. PALONOSETRON [Concomitant]
     Active Substance: PALONOSETRON
     Indication: Hypersensitivity
     Dates: start: 20210712
  38. PALONOSETRON [Concomitant]
     Active Substance: PALONOSETRON
     Indication: Premedication
  39. ACETAMINOPHEN [Concomitant]
     Active Substance: ACETAMINOPHEN
     Indication: Back pain
     Dosage: 1000
     Dates: start: 20210403
  40. XYLOPROCT(HYDROCORTISO NE ACETATE; LIDOCAINE) [Concomitant]
     Indication: Haemorrhoids
     Dosage: 5 %
     Dates: start: 20210502
  41. CYCLIZINE [Concomitant]
     Active Substance: CYCLIZINE
     Indication: Nausea
     Dosage: 50
     Dates: start: 20210503
  42. TELFAST (FEXOFENADINE HYDROCHLORIDE) [Concomitant]
     Indication: Hypersensitivity
     Dosage: 180
     Dates: start: 20210810, end: 20210817
  43. PFIZER COVID-19 VACCINE DOSE 1 [Concomitant]
  44. VITAMIN D - OSTELIN [Concomitant]
  45. VITAMIN B - BLACKMORES EXECUTIVE B STRESS FORMULA [Concomitant]

REACTIONS (1)
  - Hepatic steatosis [Not Recovered/Not Resolved]

NARRATIVE: CASE EVENT DATE: 20220307
